FAERS Safety Report 9747983 (Version 3)
Quarter: 2013Q4

REPORT INFORMATION
  Report Type: Spontaneous
  Country: US (occurrence: US)
  Receive Date: 20131212
  Receipt Date: 20131212
  Transmission Date: 20140711
  Serious: Yes (Other)
  Sender: FDA-Public Use
  Company Number: US-TEVA-388787USA

PATIENT
  Age: 25 Year
  Sex: Female
  Weight: 108.05 kg

DRUGS (2)
  1. PARAGARD 380A [Suspect]
     Indication: CONTRACEPTION
     Route: 015
     Dates: start: 20120906, end: 20130225
  2. PRENATAL VITAMINS [Concomitant]
     Dates: start: 20130225

REACTIONS (5)
  - Pregnancy with contraceptive device [Unknown]
  - Drug ineffective [Unknown]
  - Device expulsion [Recovered/Resolved]
  - Menstruation delayed [Not Recovered/Not Resolved]
  - Metrorrhagia [Recovered/Resolved]
